FAERS Safety Report 7446031-9 (Version None)
Quarter: 2011Q2

REPORT INFORMATION
  Report Type: 
  Country: None (occurrence: None)
  Receive Date: 20110429
  Receipt Date: 20110420
  Transmission Date: 20111010
  Serious: Yes (Other)
  Sender: FDA-Public Use
  Company Number: US-GENZYME-MOZO-1000506

PATIENT

DRUGS (6)
  1. MOZOBIL [Suspect]
     Indication: ACUTE MYELOID LEUKAEMIA
     Dosage: 240 MCG/KG, QD
     Route: 058
     Dates: start: 20110101
  2. MOZOBIL [Suspect]
     Dosage: UNK
     Route: 058
     Dates: start: 20110304
  3. CLOLAR [Suspect]
     Dosage: 15 MG/M2, QD
     Route: 042
     Dates: start: 20110304
  4. CLOLAR [Suspect]
     Indication: ACUTE MYELOID LEUKAEMIA
     Dosage: 20 MG/M2, QD
     Route: 042
     Dates: start: 20110101
  5. CLOLAR [Suspect]
     Dosage: 15 MG/M2, QD
     Route: 042
     Dates: start: 20110407
  6. MOZOBIL [Suspect]
     Dosage: UNK
     Route: 058
     Dates: start: 20110407

REACTIONS (7)
  - BLOOD BILIRUBIN INCREASED [None]
  - RASH [None]
  - NEUTROPENIA [None]
  - BLOOD AMYLASE INCREASED [None]
  - LIPASE INCREASED [None]
  - ALANINE AMINOTRANSFERASE INCREASED [None]
  - NAUSEA [None]
